FAERS Safety Report 24267005 (Version 1)
Quarter: 2024Q3

REPORT INFORMATION
  Report Type: Spontaneous
  Country: US (occurrence: US)
  Receive Date: 20240830
  Receipt Date: 20240830
  Transmission Date: 20241017
  Serious: Yes (Other)
  Sender: SIMILASAN
  Company Number: US-SIMILASAN-2024USSIMSPO00140

PATIENT

DRUGS (1)
  1. SEA WATER [Suspect]
     Active Substance: SEA WATER
     Indication: Cerumen removal
     Route: 001

REACTIONS (4)
  - Deafness [Unknown]
  - Ear infection [Unknown]
  - Ear discomfort [Unknown]
  - Poor quality product administered [Unknown]
